FAERS Safety Report 18366918 (Version 1)
Quarter: 2020Q4

REPORT INFORMATION
  Report Type: Spontaneous
  Country: ES (occurrence: ES)
  Receive Date: 20201009
  Receipt Date: 20201009
  Transmission Date: 20210114
  Serious: Yes (Hospitalization)
  Sender: FDA-Public Use
  Company Number: NVSC2020ES270037

PATIENT
  Age: 79 Year
  Sex: Male

DRUGS (4)
  1. CARVEDILOL. [Concomitant]
     Active Substance: CARVEDILOL
     Indication: HYPERTENSION
     Dosage: 6.25 MG, Q12H (6,25 MG CADA 12 H)
     Route: 048
     Dates: start: 20200311
  2. NOVOMIX 30 [Concomitant]
     Active Substance: INSULIN ASPART
     Indication: DIABETES MELLITUS
     Dosage: 30 IU, QD (30 U COMIDA 30 FLEXPEN 100 U/ML, SUSPENSION INYECTABLE EN UNA PLUMA PRECARGADA)
     Route: 058
     Dates: start: 20170317
  3. NOVOMIX [Concomitant]
     Active Substance: INSULIN ASPART
     Indication: DIABETES MELLITUS
     Dosage: 50 IU, QD (30 U DE Y 20 U CE 50 FLEXPEN 100 U/ML SUSP. INYECTABLE EN UNA PLUMA PRECARGADA, 5 PLUMAS
     Route: 058
     Dates: start: 20170317
  4. FUROSEMIDE. [Suspect]
     Active Substance: FUROSEMIDE
     Indication: CHRONIC KIDNEY DISEASE
     Dosage: 60 MG, QD (60 MG DIA(1-1/2-0))
     Route: 048
     Dates: start: 20200311, end: 20200618

REACTIONS (2)
  - Acute kidney injury [Recovered/Resolved]
  - Condition aggravated [Recovered/Resolved]

NARRATIVE: CASE EVENT DATE: 20200618
